FAERS Safety Report 7414066-8 (Version None)
Quarter: 2011Q2

REPORT INFORMATION
  Report Type: 
  Country: None (occurrence: None)
  Receive Date: 20110414
  Receipt Date: 20110411
  Transmission Date: 20111010
  Serious: Yes (Hospitalization, Other)
  Sender: FDA-Public Use
  Company Number: US-PFIZER INC-2011022033

PATIENT
  Sex: Male

DRUGS (2)
  1. CHANTIX [Suspect]
     Dosage: UNK
     Dates: start: 20080101, end: 20080201
  2. CHANTIX [Suspect]
     Indication: SMOKING CESSATION THERAPY
     Dosage: 0.5MG/1MG
     Dates: start: 20070901, end: 20071001

REACTIONS (9)
  - ANXIETY [None]
  - AGITATION [None]
  - IRRITABILITY [None]
  - DEPRESSION [None]
  - INSOMNIA [None]
  - THINKING ABNORMAL [None]
  - AGGRESSION [None]
  - ANGER [None]
  - SUICIDAL IDEATION [None]
